FAERS Safety Report 5961211-7 (Version None)
Quarter: 2008Q4

REPORT INFORMATION
  Report Type: 
  Country: None (occurrence: None)
  Receive Date: 20081121
  Receipt Date: 20081114
  Transmission Date: 20090506
  Serious: Yes (Hospitalization)
  Sender: FDA-Public Use
  Company Number: US-BIOGENIDEC-2008BI030921

PATIENT
  Sex: Female

DRUGS (1)
  1. TYSABRI [Suspect]
     Indication: MULTIPLE SCLEROSIS
     Route: 042
     Dates: start: 20080101, end: 20081001

REACTIONS (9)
  - DIZZINESS [None]
  - HEPATIC ENZYME INCREASED [None]
  - HERPES ZOSTER DISSEMINATED [None]
  - INSOMNIA [None]
  - MOLLUSCUM CONTAGIOSUM [None]
  - MUSCLE TWITCHING [None]
  - PAIN [None]
  - PYREXIA [None]
  - VARICELLA [None]
